FAERS Safety Report 24424848 (Version 1)
Quarter: 2024Q4

REPORT INFORMATION
  Report Type: Spontaneous
  Country: US (occurrence: US)
  Receive Date: 20241010
  Receipt Date: 20241010
  Transmission Date: 20250114
  Serious: Yes (Hospitalization, Other)
  Sender: DR REDDYS
  Company Number: US-DRL-USA-LIT/USA/24/0014797

PATIENT
  Age: 45 Year
  Sex: Female

DRUGS (3)
  1. HEPARIN [Suspect]
     Active Substance: HEPARIN SODIUM
     Indication: Cardiogenic shock
  2. ASPIRIN [Concomitant]
     Active Substance: ASPIRIN
     Indication: Cardiogenic shock
  3. BRILINTA [Concomitant]
     Active Substance: TICAGRELOR
     Indication: Cardiogenic shock

REACTIONS (2)
  - Condition aggravated [Unknown]
  - Drug ineffective for unapproved indication [Unknown]
